FAERS Safety Report 5466756-4 (Version None)
Quarter: 2007Q3

REPORT INFORMATION
  Report Type: 
  Country: None (occurrence: None)
  Receive Date: 20070925
  Receipt Date: 20070913
  Transmission Date: 20080115
  Serious: Yes (Death)
  Sender: FDA-Public Use
  Company Number: GB-ELI_LILLY_AND_COMPANY-GB200709002462

PATIENT
  Age: 67 Year
  Sex: Male

DRUGS (9)
  1. ZYPREXA [Suspect]
     Indication: PSYCHOTIC DISORDER
     Dosage: 15 MG, 2/D
     Route: 048
     Dates: start: 20030101
  2. ASPIRIN [Concomitant]
     Dosage: 150 MG, UNKNOWN
     Route: 048
  3. CEFUROXIME [Concomitant]
     Indication: PROPHYLAXIS
     Dosage: 750 MG, UNKNOWN
     Route: 042
     Dates: end: 20070522
  4. CHLORPROMAZINE [Concomitant]
     Indication: PSYCHOTIC DISORDER
     Dosage: 25 MG, 2/D
     Route: 048
  5. ENOXAPARIN SODIUM [Concomitant]
     Indication: THROMBOSIS PROPHYLAXIS
     Dosage: 40 MG, UNKNOWN
     Route: 058
     Dates: start: 20070521
  6. CO-CODAMOL [Concomitant]
     Indication: PAIN
     Dosage: 2 D/F, UNKNOWN
     Route: 048
     Dates: start: 20070521
  7. DICLOFENAC SODIUM [Concomitant]
     Indication: POSTOPERATIVE ANALGESIA
     Dosage: 50 MG, UNKNOWN
     Route: 048
     Dates: start: 20070522
  8. MORPHINE [Concomitant]
     Dosage: 10 MG, TWO DOSES IN TOTAL
     Route: 065
     Dates: start: 20070521, end: 20070522
  9. PROPRANOLOL [Concomitant]
     Indication: ANXIETY
     Dosage: 40 MG, 2/D
     Route: 048

REACTIONS (3)
  - CARDIAC ARREST [None]
  - DRUG TOXICITY [None]
  - OVERDOSE [None]
